FAERS Safety Report 5765662-5 (Version None)
Quarter: 2008Q2

REPORT INFORMATION
  Report Type: 
  Country: None (occurrence: None)
  Receive Date: 20080609
  Receipt Date: 20080609
  Transmission Date: 20081010
  Serious: No
  Sender: FDA-Public Use
  Company Number: None

PATIENT
  Sex: Female
  Weight: 103.8737 kg

DRUGS (1)
  1. PROPOXYPHENE NAPSYLATE W/ ACETAMINOPHEN [Suspect]
     Indication: ANALGESIA
     Dosage: 2 TABS EVERY 4 HOURS PO
     Route: 048
     Dates: start: 20080412, end: 20080412

REACTIONS (4)
  - DRUG INEFFECTIVE [None]
  - EMOTIONAL DISORDER [None]
  - FRUSTRATION [None]
  - PHARMACEUTICAL PRODUCT COMPLAINT [None]
